FAERS Safety Report 7429835-8 (Version None)
Quarter: 2011Q2

REPORT INFORMATION
  Report Type: 
  Country: None (occurrence: None)
  Receive Date: 20110421
  Receipt Date: 20110413
  Transmission Date: 20111010
  Serious: Yes (Hospitalization)
  Sender: FDA-Public Use
  Company Number: US-JNJFOC-20110312445

PATIENT
  Sex: Female

DRUGS (3)
  1. DURAGESIC-100 [Suspect]
     Indication: SPINAL DISORDER
     Route: 062
  2. DURAGESIC-100 [Suspect]
     Route: 062
  3. FENTANYL-100 [Suspect]
     Indication: SPINAL DISORDER
     Route: 062

REACTIONS (9)
  - ADVERSE EVENT [None]
  - APPLICATION SITE URTICARIA [None]
  - INCORRECT DRUG ADMINISTRATION DURATION [None]
  - CONSTIPATION [None]
  - DERMATITIS CONTACT [None]
  - THERAPEUTIC RESPONSE UNEXPECTED WITH DRUG SUBSTITUTION [None]
  - HYPERSOMNIA [None]
  - APPLICATION SITE RASH [None]
  - APPLICATION SITE PRURITUS [None]
